FAERS Safety Report 5688292-2 (Version None)
Quarter: 2008Q1

REPORT INFORMATION
  Report Type: 
  Country: None (occurrence: None)
  Receive Date: 20080328
  Receipt Date: 20080328
  Transmission Date: 20080703
  Serious: Yes (Hospitalization)
  Sender: FDA-Public Use
  Company Number: None

PATIENT
  Age: 16 Year
  Sex: Female
  Weight: 71.6683 kg

DRUGS (2)
  1. PROZAC [Suspect]
     Indication: ANXIETY
     Dates: start: 20071107, end: 20071223
  2. PROZAC [Suspect]
     Indication: DEPRESSION
     Dates: start: 20071107, end: 20071223

REACTIONS (2)
  - ABNORMAL BEHAVIOUR [None]
  - SUICIDAL IDEATION [None]
